FAERS Safety Report 10497389 (Version 1)
Quarter: 2014Q4

REPORT INFORMATION
  Report Type: Spontaneous
  Country: US (occurrence: US)
  Receive Date: 20141006
  Receipt Date: 20141006
  Transmission Date: 20150528
  Serious: Yes (Other)
  Sender: FDA-Public Use
  Company Number: US-009507513-1409USA014314

PATIENT
  Age: 15 Year
  Sex: Female

DRUGS (1)
  1. NEXPLANON [Suspect]
     Active Substance: ETONOGESTREL
     Dosage: UNK, LOCATION IN HER ARM
     Route: 059
     Dates: start: 201312

REACTIONS (5)
  - Abortion spontaneous [Unknown]
  - Aggression [Unknown]
  - Metrorrhagia [Unknown]
  - Device dislocation [Unknown]
  - Unintended pregnancy [Recovered/Resolved]
